FAERS Safety Report 14806015 (Version 1)
Quarter: 2018Q2

REPORT INFORMATION
  Report Type: Report from Study
  Country: DE (occurrence: DE)
  Receive Date: 20180425
  Receipt Date: 20180425
  Transmission Date: 20180711
  Serious: Yes (Hospitalization)
  Sender: FDA-Public Use
  Company Number: DE-SA-200121883DE

PATIENT
  Age: 60 Year
  Sex: Male
  Weight: 80 kg

DRUGS (8)
  1. GLUCOBAY [Concomitant]
     Active Substance: ACARBOSE
     Indication: DIABETES MELLITUS
     Dosage: DOSE UNIT: 100 MG
     Route: 048
     Dates: start: 20001212, end: 20010109
  2. DELIX [Concomitant]
     Active Substance: RAMIPRIL
     Indication: CARDIAC FAILURE
     Dosage: DOSE UNIT: 5 MG
     Route: 048
     Dates: start: 20001212, end: 20010109
  3. EUGLUCON N [Suspect]
     Active Substance: GLYBURIDE
     Indication: DIABETES MELLITUS
     Route: 048
     Dates: start: 20001212, end: 20010106
  4. MUNOBAL [Concomitant]
     Active Substance: FELODIPINE
     Indication: HYPERTENSION
     Dosage: DOSE AS USED: 10-0-5 MG?DOSE UNIT: 10 MG
     Route: 048
     Dates: start: 20001212, end: 20010109
  5. SORTIS [Concomitant]
     Active Substance: ATORVASTATIN
     Indication: HYPERLIPIDAEMIA
     Dosage: DOSE UNIT: 20 MG
     Route: 048
     Dates: start: 20001212, end: 20010109
  6. ASPIRIN. [Suspect]
     Active Substance: ASPIRIN
     Indication: COAGULOPATHY
     Dosage: DOSE UNIT: 100 MG
     Route: 048
     Dates: start: 20001212, end: 20010109
  7. ASPIRIN. [Suspect]
     Active Substance: ASPIRIN
     Indication: ANTICOAGULANT THERAPY
     Dosage: DOSE UNIT: 100 MG
     Route: 048
     Dates: start: 20001212, end: 20010109
  8. BELOC ZOK [Concomitant]
     Active Substance: METOPROLOL SUCCINATE
     Indication: HYPERTENSION
     Dosage: DOSE AS USED: 1-0-0.5
     Route: 048
     Dates: start: 20001212, end: 20010109

REACTIONS (6)
  - Mouth ulceration [Recovering/Resolving]
  - Burning sensation [Recovering/Resolving]
  - Stevens-Johnson syndrome [Recovering/Resolving]
  - Conjunctivitis [Recovering/Resolving]
  - Rash papular [Recovering/Resolving]
  - Rash [Recovering/Resolving]

NARRATIVE: CASE EVENT DATE: 20010105
